FAERS Safety Report 13687154 (Version 4)
Quarter: 2019Q2

REPORT INFORMATION
  Report Type: Report from Study
  Country: US (occurrence: US)
  Receive Date: 20170623
  Receipt Date: 20190517
  Transmission Date: 20190711
  Serious: Yes (Hospitalization, Other)
  Sender: FDA-Public Use
  Company Number: US-SA-2017SA112458

PATIENT
  Age: 18 Month
  Sex: Female

DRUGS (2)
  1. ALGLUCOSIDASE ALFA [Suspect]
     Active Substance: ALGLUCOSIDASE ALFA
     Indication: GLYCOGEN STORAGE DISORDER
     Dosage: 400 MG, QOW
     Route: 041
     Dates: start: 20160303
  2. ALGLUCOSIDASE ALFA [Suspect]
     Active Substance: ALGLUCOSIDASE ALFA
     Indication: GLYCOGEN STORAGE DISEASE TYPE II

REACTIONS (9)
  - Respiratory tract congestion [Unknown]
  - Muscular weakness [Unknown]
  - Heart rate increased [Unknown]
  - Wean from ventilator [Recovering/Resolving]
  - Cardiomyopathy [Unknown]
  - Blood pressure decreased [Recovered/Resolved]
  - Oedema peripheral [Unknown]
  - Dyspnoea [Unknown]
  - Femur fracture [Unknown]

NARRATIVE: CASE EVENT DATE: 20170318
